FAERS Safety Report 18485500 (Version 2)
Quarter: 2021Q1

REPORT INFORMATION
  Report Type: Spontaneous
  Country: US (occurrence: US)
  Receive Date: 20201110
  Receipt Date: 20210112
  Transmission Date: 20210419
  Serious: Yes (Other)
  Sender: FDA-Public Use
  Company Number: US-BAYER-2020-236732

PATIENT
  Age: 73 Year
  Sex: Male
  Weight: 111.11 kg

DRUGS (7)
  1. PLAVIX [Suspect]
     Active Substance: CLOPIDOGREL BISULFATE
     Dosage: UNK
     Route: 048
  2. TAMSULOSIN [Concomitant]
     Active Substance: TAMSULOSIN
     Dosage: 4 MG
  3. MYRBETRIQ [Concomitant]
     Active Substance: MIRABEGRON
     Dosage: 50 MG
  4. DONEPEZIL. [Concomitant]
     Active Substance: DONEPEZIL
     Dosage: 5 MG
  5. BAYER LOW DOSE [Suspect]
     Active Substance: ASPIRIN
     Dosage: 81 MG
     Route: 048
  6. FIRDAPSE [Suspect]
     Active Substance: AMIFAMPRIDINE PHOSPHATE
     Dosage: 20 MG
     Route: 048
  7. METFORMIN [Concomitant]
     Active Substance: METFORMIN HYDROCHLORIDE
     Dosage: UNK

REACTIONS (4)
  - Bile duct stone [Recovered/Resolved]
  - Post procedural haemorrhage [Recovered/Resolved]
  - Weight decreased [Recovered/Resolved]
  - Dehydration [Recovered/Resolved]

NARRATIVE: CASE EVENT DATE: 2020
